FAERS Safety Report 15478536 (Version 1)
Quarter: 2018Q4

REPORT INFORMATION
  Report Type: Spontaneous
  Country: US (occurrence: US)
  Receive Date: 20181009
  Receipt Date: 20181009
  Transmission Date: 20190205
  Serious: Yes (Death, Hospitalization)
  Sender: FDA-Public Use
  Company Number: US-ACELLA PHARMACEUTICALS, LLC-2055836

PATIENT
  Age: 52 Year
  Sex: Female

DRUGS (4)
  1. VENLAFAXINE [Concomitant]
     Active Substance: VENLAFAXINE HYDROCHLORIDE
  2. BROMPHENIRAMINE MAL, PSEUDOEPHEDRINE HCL, AND DEXTROMETHORPHAN HBR (AN [Suspect]
     Active Substance: DEXBROMPHENIRAMINE MALEATE\DEXTROMETHORPHAN HYDROBROMIDE\PSEUDOEPHEDRINE HYDROCHLORIDE
  3. NICOTINE. [Concomitant]
     Active Substance: NICOTINE
  4. CAFFEINE. [Concomitant]
     Active Substance: CAFFEINE

REACTIONS (6)
  - Ventricular arrhythmia [Fatal]
  - Pneumonia aspiration [Unknown]
  - Brain death [Fatal]
  - Depressed level of consciousness [Unknown]
  - Gastrointestinal haemorrhage [Unknown]
  - Electrocardiogram QRS complex prolonged [Unknown]
